FAERS Safety Report 18922879 (Version 1)
Quarter: 2021Q1

REPORT INFORMATION
  Report Type: Spontaneous
  Country: US (occurrence: US)
  Receive Date: 20210222
  Receipt Date: 20210222
  Transmission Date: 20210420
  Serious: Yes (Life-Threatening, Hospitalization)
  Sender: FDA-Public Use
  Company Number: None

PATIENT
  Age: 35 Year
  Sex: Female
  Weight: 74.39 kg

DRUGS (2)
  1. PRENATAL VITAMINS [Concomitant]
     Active Substance: VITAMINS
  2. KYLEENA [Suspect]
     Active Substance: LEVONORGESTREL
     Dates: start: 20200714

REACTIONS (4)
  - Abdominal pain [None]
  - Exposure during pregnancy [None]
  - Haemorrhagic cyst [None]
  - Ectopic pregnancy [None]

NARRATIVE: CASE EVENT DATE: 20210219
